FAERS Safety Report 8154525-6 (Version None)
Quarter: 2012Q1

REPORT INFORMATION
  Report Type: 
  Country: None (occurrence: None)
  Receive Date: 20120215
  Receipt Date: 20120207
  Transmission Date: 20120608
  Serious: Yes (Disabling)
  Sender: FDA-Public Use
  Company Number: 2012SP007117

PATIENT
  Age: 58 Year
  Sex: Female

DRUGS (5)
  1. CALCIUM [Concomitant]
  2. VICTRELIS [Suspect]
     Indication: HEPATITIS C
     Dates: start: 20120102, end: 20120127
  3. PEG-INTRON [Suspect]
     Indication: HEPATITIS C
     Dates: start: 20111204, end: 20120127
  4. RIBAVIRIN [Suspect]
     Indication: HEPATITIS C
     Dates: start: 20111204, end: 20120127
  5. FISH OIL [Concomitant]

REACTIONS (21)
  - FATIGUE [None]
  - PYREXIA [None]
  - PALPITATIONS [None]
  - ABDOMINAL PAIN [None]
  - WEIGHT INCREASED [None]
  - DRY MOUTH [None]
  - NAUSEA [None]
  - ANAEMIA [None]
  - DYSGEUSIA [None]
  - VISION BLURRED [None]
  - MOVEMENT DISORDER [None]
  - BURN OESOPHAGEAL [None]
  - WEIGHT DECREASED [None]
  - DIZZINESS [None]
  - INJECTION SITE INFLAMMATION [None]
  - HEADACHE [None]
  - CHEST PAIN [None]
  - VOMITING [None]
  - RASH GENERALISED [None]
  - SCAB [None]
  - PAROSMIA [None]
